FAERS Safety Report 20862040 (Version 1)
Quarter: 2022Q2

REPORT INFORMATION
  Report Type: Spontaneous
  Country: NZ (occurrence: NZ)
  Receive Date: 20220523
  Receipt Date: 20220523
  Transmission Date: 20220721
  Serious: Yes (Death, Hospitalization, Other)
  Sender: FDA-Public Use
  Company Number: NZ-SAOL THERAPEUTICS-2022SAO00058

PATIENT
  Age: 24 Year
  Sex: Male

DRUGS (16)
  1. BACLOFEN [Suspect]
     Active Substance: BACLOFEN
     Indication: Muscle spasticity
     Dosage: UNK
     Route: 065
     Dates: start: 20160202
  2. BACLOFEN [Suspect]
     Active Substance: BACLOFEN
     Dosage: UNK, INCREASED BY 10%
     Route: 065
     Dates: start: 202112
  3. BACLOFEN [Suspect]
     Active Substance: BACLOFEN
     Dosage: 901.2 ?G\DAY
     Route: 065
     Dates: start: 20220119
  4. BACLOFEN [Suspect]
     Active Substance: BACLOFEN
     Dosage: 920.2 ?G\DAY
     Route: 065
     Dates: start: 2022, end: 20220228
  5. ROCURONIUM [Suspect]
     Active Substance: ROCURONIUM BROMIDE
     Indication: Product used for unknown indication
     Dosage: UNK
     Route: 065
  6. BENZTROPINE [Concomitant]
     Active Substance: BENZTROPINE
     Indication: Product used for unknown indication
     Dosage: 1 MILLIGRAM, 3X/DAY AT 7 AM, 2 PM AND 9 PM
     Route: 048
  7. DOCUSATE SODIUM\SENNOSIDE B [Concomitant]
     Active Substance: DOCUSATE SODIUM\SENNOSIDE B
     Indication: Product used for unknown indication
     Dosage: 1 TABLETS, 2X/DAY AT 7 AM AND 9PM
     Route: 065
  8. TETRABENAZINE [Concomitant]
     Active Substance: TETRABENAZINE
     Indication: Product used for unknown indication
     Dosage: 25 MILLIGRAM, 3X/DAY AT 7AM, 2PM AND 9PM
     Route: 065
  9. CLONIDINE [Concomitant]
     Active Substance: CLONIDINE
     Indication: Product used for unknown indication
     Dosage: 1 DOSAGE UNITS (PATCH), 1X/WEEK ON TUESDAYS
     Route: 065
  10. VALPROATE SODIUM [Concomitant]
     Active Substance: VALPROATE SODIUM
     Indication: Product used for unknown indication
     Dosage: 12.5 MILLILITER, 1X/DAY VIA PEG IN THE MORNING
     Route: 048
  11. VALPROATE SODIUM [Concomitant]
     Active Substance: VALPROATE SODIUM
     Dosage: 15 MILLILITER, 1X/DAY VIA PEG IN NIGHT
     Route: 048
  12. DIAZEPAM [Concomitant]
     Active Substance: DIAZEPAM
     Indication: Product used for unknown indication
     Dosage: 5 MILLIGRAM, 2X/DAY VIA PEG AT 7AM AND 5PM
     Route: 048
  13. DIAZEPAM [Concomitant]
     Active Substance: DIAZEPAM
     Dosage: 10 MILLIGRAM, 2X/DAY VIA PEG AT 12PM AND 9PM
     Route: 048
  14. POLYETHYLENE GLYCOL 3350 [Concomitant]
     Active Substance: POLYETHYLENE GLYCOL 3350
     Indication: Product used for unknown indication
     Dosage: 1 DOSAGE UNITS, 2X/DAY VIA PEG ONE SACHET IN MORNING AND TWO SACHETS AT NIGHT
     Route: 048
  15. IBUPROFEN [Concomitant]
     Active Substance: IBUPROFEN
     Indication: Product used for unknown indication
     Dosage: 5 MILLIGRAM UP TO 3X/DAY VIA PEG AS NEEDED
     Route: 048
  16. HALOPERIDOL [Concomitant]
     Active Substance: HALOPERIDOL
     Indication: Dystonia
     Dosage: 2.5 MILLIGRAM EVERY 6 HOURS AS REQUIRED
     Route: 065

REACTIONS (6)
  - Anaphylactic reaction [Not Recovered/Not Resolved]
  - Autonomic nervous system imbalance [Fatal]
  - Drug withdrawal syndrome [Fatal]
  - Dystonia [Recovered/Resolved]
  - Device failure [Not Recovered/Not Resolved]
  - Oropharyngeal pain [Recovered/Resolved]

NARRATIVE: CASE EVENT DATE: 20200801
